FAERS Safety Report 9233206 (Version 1)
Quarter: 2013Q2

REPORT INFORMATION
  Report Type: Spontaneous
  Country: US (occurrence: None)
  Receive Date: 20130415
  Receipt Date: 20130415
  Transmission Date: 20140414
  Serious: Yes (Hospitalization)
  Sender: FDA-Public Use
  Company Number: None

PATIENT
  Age: 40 Year
  Sex: Female
  Weight: 127.01 kg

DRUGS (1)
  1. HCTZ [Suspect]
     Indication: HYPERTENSION
     Dosage: 1 PILL ONCE A DAY PO
     Route: 048
     Dates: start: 20130323, end: 20130411

REACTIONS (3)
  - Restless legs syndrome [None]
  - Vomiting [None]
  - Headache [None]
